FAERS Safety Report 7884555-0 (Version None)
Quarter: 2011Q4

REPORT INFORMATION
  Report Type: 
  Country: None (occurrence: None)
  Receive Date: 20111102
  Receipt Date: 20111024
  Transmission Date: 20120403
  Serious: Yes (Other)
  Sender: FDA-Public Use
  Company Number: BR-PFIZER INC-2011257260

PATIENT
  Age: 78 Year
  Sex: Female
  Weight: 65 kg

DRUGS (5)
  1. AZORGA [Concomitant]
     Indication: GLAUCOMA
     Dosage: 1 GTT, 2X/DAY (IN AM AND AT NIGHT)
     Dates: start: 20080101
  2. SIMVASTATIN [Concomitant]
     Indication: BLOOD CHOLESTEROL INCREASED
     Dosage: UNK
  3. PANTOPRAZOLE [Concomitant]
     Dosage: UNK
  4. XALATAN [Suspect]
     Indication: GLAUCOMA
     Dosage: 1.5 UG, 1X/DAY IN LEFT EYE
     Route: 047
  5. GEROVITAL [Concomitant]
     Dosage: UNK

REACTIONS (2)
  - ARTHRITIS [None]
  - OSTEOARTHRITIS [None]
